FAERS Safety Report 20972761 (Version 2)
Quarter: 2022Q3

REPORT INFORMATION
  Report Type: Spontaneous
  Country: US (occurrence: US)
  Receive Date: 20220617
  Receipt Date: 20220705
  Transmission Date: 20221027
  Serious: No
  Sender: FDA-Public Use
  Company Number: US-HETERO-HET2022US01314

PATIENT
  Sex: Female

DRUGS (1)
  1. LOSARTAN [Suspect]
     Active Substance: LOSARTAN
     Indication: Hypertension
     Dosage: 25 MG, Q.D.
     Route: 048

REACTIONS (3)
  - Abdominal discomfort [Unknown]
  - Dizziness [Unknown]
  - Fatigue [Unknown]
